FAERS Safety Report 4895989-0 (Version None)
Quarter: 2006Q1

REPORT INFORMATION
  Report Type: 
  Country: None (occurrence: None)
  Receive Date: 20060125
  Receipt Date: 20060113
  Transmission Date: 20060701
  Serious: Yes (Other)
  Sender: FDA-Public Use
  Company Number: 2006008211

PATIENT
  Age: 40 Year
  Sex: Female
  Weight: 72.5755 kg

DRUGS (3)
  1. SUDAFED 12 HOUR [Suspect]
     Indication: EAR DISORDER
     Dosage: 1 CAPLET ONCE A DAY IN THE MORNING, ORAL
     Route: 048
     Dates: start: 20051221, end: 20060107
  2. IBUPROFEN [Concomitant]
  3. ACETAMINOPHEN [Concomitant]

REACTIONS (2)
  - DYSPNOEA [None]
  - HEART RATE INCREASED [None]
